FAERS Safety Report 5372099-X (Version None)
Quarter: 2007Q2

REPORT INFORMATION
  Report Type: 
  Country: None (occurrence: None)
  Receive Date: 20070615
  Receipt Date: 20070510
  Transmission Date: 20071010
  Serious: No
  Sender: FDA-Public Use
  Company Number: SP01236

PATIENT
  Age: 47 Year
  Sex: Female

DRUGS (2)
  1. XIFAXAN [Suspect]
     Indication: DIARRHOEA
     Dosage: 600 MG (200 MG, 3 IN 1 D), ORAL
     Route: 048
     Dates: start: 20070417
  2. TOPAMAX [Concomitant]

REACTIONS (1)
  - DRUG INEFFECTIVE [None]
